FAERS Safety Report 12100134 (Version 1)
Quarter: 2016Q1

REPORT INFORMATION
  Report Type: Spontaneous
  Country: HU (occurrence: HU)
  Receive Date: 20160222
  Receipt Date: 20160222
  Transmission Date: 20160526
  Serious: Yes (Other)
  Sender: FDA-Public Use
  Company Number: PHHY2016HU022490

PATIENT
  Sex: Male

DRUGS (2)
  1. BISOPROLOL SANDOZ [Suspect]
     Active Substance: BISOPROLOL
     Indication: FOETAL EXPOSURE DURING PREGNANCY
     Dosage: 2.5 MG, QD
     Route: 064
  2. DIAPHYLLIN [Suspect]
     Active Substance: AMINOPHYLLINE
     Indication: FOETAL EXPOSURE DURING PREGNANCY
     Route: 064

REACTIONS (4)
  - Low birth weight baby [Unknown]
  - Caesarean section [None]
  - Foetal growth restriction [Unknown]
  - Foetal exposure during pregnancy [Unknown]
